FAERS Safety Report 4804822-4 (Version None)
Quarter: 2005Q4

REPORT INFORMATION
  Report Type: 
  Country: None (occurrence: None)
  Receive Date: 20051017
  Receipt Date: 20051006
  Transmission Date: 20060501
  Serious: Yes (Death)
  Sender: FDA-Public Use
  Company Number: PCA0292870

PATIENT
  Age: 17 Year

DRUGS (2)
  1. 12 HOUR PSEUDOEPHED, 120 MG, PERRIGO COMPANY [Suspect]
     Dosage: ORAL
     Route: 048
  2. DIAZEPAM [Concomitant]

REACTIONS (2)
  - INTENTIONAL DRUG MISUSE [None]
  - OVERDOSE [None]
